FAERS Safety Report 8469646-8 (Version None)
Quarter: 2012Q2

REPORT INFORMATION
  Report Type: 
  Country: None (occurrence: None)
  Receive Date: 20120626
  Receipt Date: 20120618
  Transmission Date: 20120825
  Serious: Yes (Other)
  Sender: FDA-Public Use
  Company Number: PHHY2011JP099947

PATIENT
  Age: 55 Year
  Sex: Male

DRUGS (11)
  1. IMATINIB MESYLATE [Suspect]
     Dosage: 400 MG, DAILY
  2. MELPHALAN HYDROCHLORIDE [Concomitant]
  3. METHYLPREDNISOLONE [Concomitant]
  4. IMATINIB MESYLATE [Suspect]
     Dosage: 800 MG, DAILY
  5. PREDNISOLONE [Suspect]
  6. FLUDARABINE PHOSPHATE [Concomitant]
  7. DOXORUBICIN HCL [Suspect]
  8. IMATINIB MESYLATE [Suspect]
     Indication: ACUTE LYMPHOCYTIC LEUKAEMIA
     Dosage: 600 MG, DAILY
  9. CYCLOPHOSPHAMIDE [Suspect]
  10. CYTARABINE [Concomitant]
  11. VINDESINE [Suspect]

REACTIONS (6)
  - ACUTE LYMPHOCYTIC LEUKAEMIA RECURRENT [None]
  - GRAFT VERSUS HOST DISEASE [None]
  - CHIMERISM [None]
  - MUCOSAL INFLAMMATION [None]
  - BLAST CELL CRISIS [None]
  - SKIN LESION [None]
